FAERS Safety Report 21073672 (Version 3)
Quarter: 2022Q3

REPORT INFORMATION
  Report Type: Report from Study
  Country: CA (occurrence: CA)
  Receive Date: 20220713
  Receipt Date: 20220827
  Transmission Date: 20221027
  Serious: Yes (Hospitalization)
  Sender: FDA-Public Use
  Company Number: CA-ABBVIE-22K-028-4464264-00

PATIENT
  Sex: Female

DRUGS (1)
  1. HUMIRA [Suspect]
     Active Substance: ADALIMUMAB
     Indication: Crohn^s disease
     Route: 058
     Dates: start: 20130215, end: 2022

REACTIONS (12)
  - Intensive care [Not Recovered/Not Resolved]
  - Renal disorder [Unknown]
  - Liver disorder [Unknown]
  - Phlebitis superficial [Unknown]
  - Gastrointestinal disorder [Unknown]
  - Illness [Unknown]
  - Wound [Unknown]
  - Staphylococcal infection [Unknown]
  - Pneumonia bacterial [Unknown]
  - Escherichia infection [Unknown]
  - Pain [Unknown]
  - Crohn^s disease [Unknown]
